FAERS Safety Report 5152108-3 (Version None)
Quarter: 2006Q4

REPORT INFORMATION
  Report Type: 
  Country: None (occurrence: None)
  Receive Date: 20061113
  Receipt Date: 20061113
  Transmission Date: 20070319
  Serious: No
  Sender: FDA-Public Use
  Company Number: None

PATIENT
  Age: 55 Year
  Sex: Male
  Weight: 82.4639 kg

DRUGS (8)
  1. VIREAD [Suspect]
     Indication: ACQUIRED IMMUNODEFICIENCY SYNDROME
     Dosage: 800MG DAILY PO
     Route: 048
     Dates: start: 20020101, end: 20060701
  2. VIREAD [Suspect]
     Indication: HIV INFECTION
     Dosage: 800MG DAILY PO
     Route: 048
     Dates: start: 20020101, end: 20060701
  3. KALETRA [Concomitant]
  4. NEURONTIN [Concomitant]
  5. GABITRIL [Concomitant]
  6. AMITRIPTYLINE HCL [Concomitant]
  7. MS CONTIN [Concomitant]
  8. CLONAZEPAM [Concomitant]

REACTIONS (1)
  - RENAL TUBULAR ACIDOSIS [None]
